FAERS Safety Report 16068541 (Version 1)
Quarter: 2019Q1

REPORT INFORMATION
  Report Type: Spontaneous
  Country: GB (occurrence: GB)
  Receive Date: 20190313
  Receipt Date: 20190313
  Transmission Date: 20190418
  Serious: Yes (Life-Threatening, Hospitalization)
  Sender: FDA-Public Use
  Company Number: GB-MYLANLABS-MK-6022169

PATIENT
  Age: 73 Year
  Sex: Male

DRUGS (1)
  1. METFORMIN [Suspect]
     Active Substance: METFORMIN HYDROCHLORIDE
     Indication: TYPE 2 DIABETES MELLITUS
     Dosage: 2 DOSAGE FORM, QD (DOSE: 1700 - 2000 MG)
     Route: 048

REACTIONS (5)
  - Acute kidney injury [Unknown]
  - Hypotension [Unknown]
  - Lactic acidosis [Recovered/Resolved]
  - Confusional state [Unknown]
  - Vomiting [Recovering/Resolving]
